FAERS Safety Report 10218538 (Version 1)
Quarter: 2014Q2

REPORT INFORMATION
  Report Type: Spontaneous
  Country: US (occurrence: US)
  Receive Date: 20140605
  Receipt Date: 20140605
  Transmission Date: 20141212
  Serious: No
  Sender: FDA-Public Use
  Company Number: US-GILEAD-2014-0104009

PATIENT
  Age: 86 Year
  Sex: Female

DRUGS (16)
  1. LETAIRIS [Suspect]
     Indication: PULMONARY HYPERTENSION
     Dosage: 5 MG, QD
     Route: 065
     Dates: start: 20131214
  2. ROPINIROLE HCL [Concomitant]
  3. NITROSTAT [Concomitant]
  4. TRAMADOL [Concomitant]
  5. LOSARTAN [Concomitant]
  6. CELEBREX [Concomitant]
  7. PIOGLITAZONE HCL [Concomitant]
  8. LYRICA [Concomitant]
  9. LIPITOR [Concomitant]
  10. FUROSEMIDE [Concomitant]
  11. METOPROLOL [Concomitant]
  12. KLOR CON [Concomitant]
  13. PROAIR HFA [Concomitant]
  14. GLIMEPIRIDE [Concomitant]
  15. ZOLPIDEM [Concomitant]
  16. ISOSORBIDE [Concomitant]

REACTIONS (1)
  - Unevaluable event [Recovered/Resolved]
